FAERS Safety Report 18249220 (Version 2)
Quarter: 2021Q1

REPORT INFORMATION
  Report Type: Other
  Country: AR (occurrence: AR)
  Receive Date: 20200910
  Receipt Date: 20210122
  Transmission Date: 20210419
  Serious: Yes (Other)
  Sender: FDA-Public Use
  Company Number: AR-ROCHE-2033751

PATIENT
  Age: 62 Year
  Sex: Female

DRUGS (4)
  1. VENTOLIN [Concomitant]
     Active Substance: ALBUTEROL SULFATE
     Indication: PRODUCT USED FOR UNKNOWN INDICATION
     Route: 065
  2. XOLAIR [Suspect]
     Active Substance: OMALIZUMAB
     Route: 065
  3. XOLAIR [Suspect]
     Active Substance: OMALIZUMAB
     Route: 065
     Dates: start: 20170615
  4. XOLAIR [Suspect]
     Active Substance: OMALIZUMAB
     Indication: ASTHMA
     Route: 065

REACTIONS (14)
  - Cataract [Unknown]
  - Agitation [Unknown]
  - Dyspnoea [Unknown]
  - Total lung capacity [Unknown]
  - Cough [Unknown]
  - Gait disturbance [Unknown]
  - Fatigue [Unknown]
  - Traumatic lung injury [Unknown]
  - Asthmatic crisis [Unknown]
  - Asthma [Unknown]
  - Bronchiectasis [Unknown]
  - Nasopharyngitis [Unknown]
  - Pneumonia [Recovered/Resolved]
  - Weight increased [Unknown]
